FAERS Safety Report 19807043 (Version 1)
Quarter: 2021Q3

REPORT INFORMATION
  Report Type: Spontaneous
  Country: NL (occurrence: NL)
  Receive Date: 20210909
  Receipt Date: 20210909
  Transmission Date: 20211014
  Serious: Yes (Other)
  Sender: FDA-Public Use
  Company Number: NL-TEVA-2021-NL-1949724

PATIENT
  Age: 89 Year
  Sex: Female
  Weight: 52.8 kg

DRUGS (1)
  1. BUPRENORFINE PLEISTER 5UG/UUR / BRAND NAME NOT SPECIFIED [Suspect]
     Active Substance: BUPRENORPHINE HYDROCHLORIDE
     Indication: NECK PAIN
     Dosage: 1 X A WEEK 1 PIECE:UNIT DOSE :1DOSAGEFORMTHERAPY END DATE:ASKU:PLASTER
     Dates: start: 20210811

REACTIONS (1)
  - Face oedema [Recovered/Resolved]

NARRATIVE: CASE EVENT DATE: 20210815
